FAERS Safety Report 5388701-2 (Version None)
Quarter: 2007Q3

REPORT INFORMATION
  Report Type: 
  Country: None (occurrence: None)
  Receive Date: 20070716
  Receipt Date: 20070712
  Transmission Date: 20080115
  Serious: Yes (Life-Threatening, Hospitalization)
  Sender: FDA-Public Use
  Company Number: IL-GILEAD-2007-0012659

PATIENT
  Age: 23 Year
  Sex: Male

DRUGS (2)
  1. HEPSERA [Suspect]
     Indication: HEPATITIS B
     Dates: start: 20070101
  2. LAMIVUDINE [Concomitant]

REACTIONS (1)
  - THROMBOCYTOPENIA [None]
